FAERS Safety Report 17054096 (Version 1)
Quarter: 2019Q4

REPORT INFORMATION
  Report Type: Report from Study
  Country: US (occurrence: US)
  Receive Date: 20191120
  Receipt Date: 20191120
  Transmission Date: 20200122
  Serious: Yes (Other)
  Sender: FDA-Public Use
  Company Number: US-PFIZER INC-2019499685

PATIENT
  Age: 54 Year
  Sex: Female

DRUGS (3)
  1. PERCOCET [Concomitant]
     Active Substance: ACETAMINOPHEN\OXYCODONE HYDROCHLORIDE
     Dosage: UNK
  2. FLAGYL [Suspect]
     Active Substance: METRONIDAZOLE\METRONIDAZOLE HYDROCHLORIDE
     Dosage: UNK
  3. ENTYVIO [Suspect]
     Active Substance: VEDOLIZUMAB
     Indication: CROHN^S DISEASE
     Dosage: 300 MG, EVERY 5 WEEKS
     Route: 042

REACTIONS (20)
  - Frustration tolerance decreased [Unknown]
  - Myalgia [Unknown]
  - Musculoskeletal discomfort [Unknown]
  - Pouchitis [Unknown]
  - Mental impairment [Unknown]
  - Visual impairment [Unknown]
  - Anxiety [Unknown]
  - Limb discomfort [Not Recovered/Not Resolved]
  - Pruritus [Unknown]
  - Neuropathy peripheral [Not Recovered/Not Resolved]
  - Dyspnoea [Unknown]
  - Gait disturbance [Unknown]
  - Alopecia areata [Unknown]
  - Nausea [Unknown]
  - Migraine [Unknown]
  - Muscle disorder [Unknown]
  - Speech disorder [Unknown]
  - Psychiatric symptom [Unknown]
  - Muscle atrophy [Unknown]
  - Abdominal adhesions [Unknown]
